FAERS Safety Report 14261624 (Version 1)
Quarter: 2017Q4

REPORT INFORMATION
  Report Type: Spontaneous
  Country: CH (occurrence: CH)
  Receive Date: 20171208
  Receipt Date: 20171208
  Transmission Date: 20180321
  Serious: Yes (Other)
  Sender: FDA-Public Use
  Company Number: CH-EMD SERONO-8206619

PATIENT
  Age: 43 Year
  Sex: Female

DRUGS (2)
  1. CHORIOMON [Suspect]
     Active Substance: CHORIOGONADOTROPIN ALFA
     Indication: OVULATION INDUCTION
  2. CETROTIDE [Suspect]
     Active Substance: CETRORELIX ACETATE
     Indication: ASSISTED FERTILISATION

REACTIONS (12)
  - Cough [Unknown]
  - Tachycardia [Unknown]
  - Hyperhidrosis [Unknown]
  - Fatigue [Unknown]
  - Peripheral swelling [Unknown]
  - Arrhythmia [Unknown]
  - Swelling face [Unknown]
  - Oral mucosal blistering [Unknown]
  - Diarrhoea [Unknown]
  - Injection site rash [Unknown]
  - Hypersensitivity [Unknown]
  - Skin discolouration [Unknown]
